FAERS Safety Report 8718440 (Version 2)
Quarter: 2012Q4

REPORT INFORMATION
  Report Type: 
  Country: US (occurrence: US)
  Receive Date: 20120810
  Receipt Date: 20120901
  Transmission Date: 20130627
  Serious: Yes (Other)
  Sender: FDA-Public Use
  Company Number: US-TEVA-352707USA

PATIENT
  Age: 29 Year
  Sex: Male

DRUGS (3)
  1. NUVIGIL [Suspect]
     Indication: CIRCADIAN RHYTHM SLEEP DISORDER
     Route: 048
  2. TEKTURNA [Concomitant]
     Indication: HYPERTENSION
  3. LISINOPRIL [Concomitant]
     Indication: HYPERTENSION
     Dosage: 5 Milligram Daily;
     Route: 048

REACTIONS (2)
  - Rash [Recovered/Resolved]
  - Throat irritation [Recovered/Resolved]
